FAERS Safety Report 10084793 (Version 1)
Quarter: 2014Q2

REPORT INFORMATION
  Report Type: Spontaneous
  Country: ES (occurrence: GB)
  Receive Date: 20140417
  Receipt Date: 20140417
  Transmission Date: 20141212
  Serious: Yes (Other)
  Sender: FDA-Public Use
  Company Number: GB-FRI-1000066593

PATIENT
  Age: 81 Year
  Sex: Male
  Weight: 107 kg

DRUGS (10)
  1. ACLIDINIUM [Suspect]
     Route: 055
     Dates: start: 20131130
  2. ASPIRIN [Concomitant]
     Dates: start: 20131218
  3. FINASTERIDE [Concomitant]
     Dates: start: 20131218
  4. GLIPIZIDE [Concomitant]
     Dates: start: 20130127
  5. METFORMIN [Concomitant]
     Dates: start: 20131218
  6. MOVICOL [Concomitant]
     Dates: start: 20140103, end: 20140117
  7. PERINDOPRIL ERBUMINE [Concomitant]
     Dates: start: 20131218
  8. SIMVASTATIN [Concomitant]
     Dates: start: 20131218
  9. TABPHYN MR [Concomitant]
     Dates: start: 20131126
  10. TRIMETHOPRIM [Concomitant]
     Dates: start: 20140303, end: 20140306

REACTIONS (1)
  - Mouth ulceration [Recovering/Resolving]
